FAERS Safety Report 5130898-3 (Version None)
Quarter: 2006Q4

REPORT INFORMATION
  Report Type: 
  Country: None (occurrence: None)
  Receive Date: 20061013
  Receipt Date: 20061004
  Transmission Date: 20070319
  Serious: Yes (Other)
  Sender: FDA-Public Use
  Company Number: EM2006-0535

PATIENT
  Age: 11 Year
  Sex: Female

DRUGS (1)
  1. TOBI [Suspect]
     Indication: PSEUDOMONAS INFECTION
     Dosage: INHALATION
     Route: 055

REACTIONS (2)
  - CONDITION AGGRAVATED [None]
  - CONVULSION [None]
